FAERS Safety Report 22938263 (Version 2)
Quarter: 2024Q3

REPORT INFORMATION
  Report Type: Spontaneous
  Country: FR (occurrence: FR)
  Receive Date: 20230913
  Receipt Date: 20240729
  Transmission Date: 20241017
  Serious: Yes (Hospitalization)
  Sender: BRISTOL MYERS SQUIBB
  Company Number: None

PATIENT
  Age: 77 Year
  Sex: Female
  Weight: 58.3 kg

DRUGS (2)
  1. REVLIMID [Suspect]
     Active Substance: LENALIDOMIDE
     Indication: Marginal zone lymphoma stage III
     Route: 048
     Dates: start: 20230811, end: 20230826
  2. MABTHERA [Suspect]
     Active Substance: RITUXIMAB
     Indication: Marginal zone lymphoma stage III
     Route: 042
     Dates: start: 20230811

REACTIONS (2)
  - Serum sickness [Recovering/Resolving]
  - Off label use [Unknown]

NARRATIVE: CASE EVENT DATE: 20230826
